FAERS Safety Report 13496806 (Version 3)
Quarter: 2017Q3

REPORT INFORMATION
  Report Type: Spontaneous
  Country: BR (occurrence: BR)
  Receive Date: 20170428
  Receipt Date: 20170703
  Transmission Date: 20171127
  Serious: Yes (Hospitalization, Other)
  Sender: FDA-Public Use
  Company Number: BR-BAYER-2017-080990

PATIENT
  Age: 30 Year
  Sex: Female

DRUGS (1)
  1. MIRENA [Suspect]
     Active Substance: LEVONORGESTREL
     Indication: CONTRACEPTION
     Dosage: 20 MCG/24HR, CONT
     Route: 015
     Dates: start: 201610

REACTIONS (10)
  - Musculoskeletal pain [None]
  - Ectopic pregnancy with contraceptive device [Recovered/Resolved]
  - Amenorrhoea [None]
  - Asthenia [Not Recovered/Not Resolved]
  - Drug ineffective [None]
  - Abdominal pain lower [Recovered/Resolved]
  - Anaemia [Not Recovered/Not Resolved]
  - Ruptured ectopic pregnancy [None]
  - Pelvic haemorrhage [Recovered/Resolved]
  - Flatulence [Recovered/Resolved]

NARRATIVE: CASE EVENT DATE: 201701
